FAERS Safety Report 18454790 (Version 2)
Quarter: 2020Q4

REPORT INFORMATION
  Report Type: Spontaneous
  Country: US (occurrence: US)
  Receive Date: 20201102
  Receipt Date: 20201105
  Transmission Date: 20210114
  Serious: No
  Sender: FDA-Public Use
  Company Number: US-PFIZER INC-2020416885

PATIENT
  Age: 65 Year
  Sex: Female
  Weight: 63.05 kg

DRUGS (2)
  1. ESTRING [Suspect]
     Active Substance: ESTRADIOL
     Indication: VULVOVAGINAL DISCOMFORT
  2. ESTRING [Suspect]
     Active Substance: ESTRADIOL
     Indication: VULVOVAGINAL DRYNESS
     Dosage: 2 MG (2MG CHANGE EVERY 90 DAYS)
     Dates: start: 202010, end: 202010

REACTIONS (8)
  - Abdominal discomfort [Recovered/Resolved]
  - Anxiety [Unknown]
  - Vaginal discharge [Recovered/Resolved]
  - Muscle spasms [Recovered/Resolved]
  - Flatulence [Recovered/Resolved]
  - Vulvovaginal discomfort [Recovered/Resolved]
  - Device difficult to use [Unknown]
  - Product storage error [Unknown]

NARRATIVE: CASE EVENT DATE: 202010
